FAERS Safety Report 6727303-X (Version None)
Quarter: 2010Q2

REPORT INFORMATION
  Report Type: 
  Country: None (occurrence: None)
  Receive Date: 20100517
  Receipt Date: 20100510
  Transmission Date: 20101027
  Serious: Yes (Other)
  Sender: FDA-Public Use
  Company Number: JP-JNJFOC-20100403158

PATIENT
  Sex: Male

DRUGS (2)
  1. DUROTEP MT PATCH [Suspect]
     Indication: CANCER PAIN
     Route: 062
  2. DUROTEP MT PATCH [Suspect]
     Indication: LUNG NEOPLASM MALIGNANT
     Route: 062

REACTIONS (4)
  - ASTHENIA [None]
  - COMPULSIONS [None]
  - OVERDOSE [None]
  - RESPIRATORY DEPRESSION [None]
